FAERS Safety Report 26022524 (Version 2)
Quarter: 2025Q4

REPORT INFORMATION
  Report Type: Spontaneous
  Country: US (occurrence: US)
  Receive Date: 20251110
  Receipt Date: 20251113
  Transmission Date: 20260119
  Serious: Yes (Death, Hospitalization)
  Sender: NOVO NORDISK
  Company Number: US-NOVOPROD-1554231

PATIENT
  Age: 64 Year
  Sex: Female

DRUGS (1)
  1. OZEMPIC [Suspect]
     Active Substance: SEMAGLUTIDE
     Indication: Weight control
     Dosage: 1 MG, QW

REACTIONS (13)
  - Cerebrovascular accident [Fatal]
  - Septic shock [Fatal]
  - Chills [Fatal]
  - Malaise [Fatal]
  - Pyrexia [Fatal]
  - Product use in unapproved indication [Fatal]
  - Accidental overdose [Fatal]
  - Prescription drug used without a prescription [Fatal]
  - Seizure [Unknown]
  - Dyspnoea [Unknown]
  - Asthenia [Unknown]
  - Headache [Unknown]
  - Dizziness [Unknown]

NARRATIVE: CASE EVENT DATE: 20251001
